FAERS Safety Report 8134012-1 (Version None)
Quarter: 2012Q1

REPORT INFORMATION
  Report Type: 
  Country: None (occurrence: None)
  Receive Date: 20120213
  Receipt Date: 20120203
  Transmission Date: 20120608
  Serious: Yes (Other)
  Sender: FDA-Public Use
  Company Number: US-ASTRAZENECA-2012SE02297

PATIENT
  Age: 60 Year
  Sex: Female

DRUGS (7)
  1. LISINOPRIL [Suspect]
     Route: 048
  2. ATENOLOL [Concomitant]
     Route: 048
  3. LEVOCETRIZINE [Concomitant]
     Route: 048
  4. LOSARTAN POTASSIUM [Concomitant]
  5. SEROQUEL XR [Suspect]
     Route: 048
  6. NYSTATIN [Concomitant]
  7. NEXIUM [Suspect]
     Route: 048

REACTIONS (16)
  - HAND FRACTURE [None]
  - DEPRESSION [None]
  - ALLERGIC SINUSITIS [None]
  - INTERTRIGO [None]
  - ROAD TRAFFIC ACCIDENT [None]
  - BLOOD PRESSURE DECREASED [None]
  - URINARY TRACT INFECTION [None]
  - RASH [None]
  - NASAL CONGESTION [None]
  - HEADACHE [None]
  - MYALGIA [None]
  - WRIST FRACTURE [None]
  - ACCIDENT [None]
  - BACK PAIN [None]
  - ANXIETY [None]
  - DIZZINESS [None]
